FAERS Safety Report 15979333 (Version 1)
Quarter: 2019Q1

REPORT INFORMATION
  Report Type: Spontaneous
  Country: CH (occurrence: CH)
  Receive Date: 20190219
  Receipt Date: 20190219
  Transmission Date: 20190418
  Serious: Yes (Hospitalization)
  Sender: FDA-Public Use
  Company Number: CH-TEVA-2019-CH-1014203

PATIENT
  Sex: Male
  Weight: 98 kg

DRUGS (1)
  1. ANTABUS [Suspect]
     Active Substance: DISULFIRAM
     Dosage: 400MG- 800 MG
     Route: 048
     Dates: start: 20180806, end: 20180820

REACTIONS (5)
  - Myalgia [Recovered/Resolved]
  - Blood creatine phosphokinase increased [Recovered/Resolved]
  - Asthenia [Recovered/Resolved]
  - Aspartate aminotransferase increased [Recovered/Resolved]
  - Alanine aminotransferase increased [Recovered/Resolved]
